FAERS Safety Report 7608202-8 (Version None)
Quarter: 2011Q3

REPORT INFORMATION
  Report Type: 
  Country: None (occurrence: None)
  Receive Date: 20110714
  Receipt Date: 20110630
  Transmission Date: 20111222
  Serious: Yes (Other)
  Sender: FDA-Public Use
  Company Number: US-ELI_LILLY_AND_COMPANY-US201107002172

PATIENT
  Sex: Female

DRUGS (7)
  1. WELLBUTRIN [Concomitant]
  2. MAGNESIUM [Concomitant]
  3. HYDROCODONE [Concomitant]
  4. LOSARTAN/HYDROCHLOORTHIAZIDE [Concomitant]
  5. POTASSIUM [Concomitant]
  6. FORTEO [Suspect]
     Indication: OSTEOPOROSIS
     Dosage: 20 UG, QD
  7. VITAMIN D [Concomitant]

REACTIONS (8)
  - PELVIC FRACTURE [None]
  - INCORRECT DRUG ADMINISTRATION DURATION [None]
  - WRIST FRACTURE [None]
  - FRACTURED COCCYX [None]
  - RIB FRACTURE [None]
  - PAIN [None]
  - FOOT FRACTURE [None]
  - BACK DISORDER [None]
